FAERS Safety Report 8552251-2 (Version None)
Quarter: 2012Q3

REPORT INFORMATION
  Report Type: 
  Country: None (occurrence: None)
  Receive Date: 20120731
  Receipt Date: 20120726
  Transmission Date: 20120928
  Serious: Yes (Other)
  Sender: FDA-Public Use
  Company Number: AT-BRISTOL-MYERS SQUIBB COMPANY-16807471

PATIENT
  Age: 26 Year
  Sex: Female

DRUGS (5)
  1. ABILIFY [Suspect]
     Indication: DEPRESSION
     Route: 048
     Dates: start: 20110101
  2. LORAZEPAM [Suspect]
  3. ABILIFY [Suspect]
     Indication: PSYCHOTIC DISORDER
     Route: 048
     Dates: start: 20110101
  4. TRAZODONE HCL [Suspect]
  5. ESCITALOPRAM [Suspect]

REACTIONS (1)
  - PULMONARY EMBOLISM [None]
